FAERS Safety Report 6199454-2 (Version None)
Quarter: 2009Q2

REPORT INFORMATION
  Report Type: 
  Country: None (occurrence: None)
  Receive Date: 20090522
  Receipt Date: 20090515
  Transmission Date: 20091009
  Serious: Yes (Death)
  Sender: FDA-Public Use
  Company Number: PE-PFIZER INC-2009214892

PATIENT
  Age: 60 Year

DRUGS (1)
  1. ACCUPRIL [Suspect]
     Indication: HYPERTENSION
     Dosage: 40 MG, 1X/DAY
     Dates: start: 20070401, end: 20090501

REACTIONS (1)
  - DEATH [None]
